FAERS Safety Report 14977899 (Version 1)
Quarter: 2018Q2

REPORT INFORMATION
  Report Type: Spontaneous
  Country: US (occurrence: US)
  Receive Date: 20180606
  Receipt Date: 20180606
  Transmission Date: 20180711
  Serious: No
  Sender: FDA-Public Use
  Company Number: US-009507513-1805USA003006

PATIENT
  Age: 18 Year
  Sex: Female

DRUGS (3)
  1. WELLBUTRIN [Concomitant]
     Active Substance: BUPROPION HYDROCHLORIDE
  2. NEXPLANON [Suspect]
     Active Substance: ETONOGESTREL
     Indication: CONTRACEPTION
  3. PROVENTIL [Concomitant]
     Active Substance: ALBUTEROL

REACTIONS (5)
  - Pain [Unknown]
  - Cyanosis [Unknown]
  - Product quality issue [Unknown]
  - Implant site pain [Unknown]
  - Device difficult to use [Unknown]
